FAERS Safety Report 6271976-5 (Version None)
Quarter: 2009Q3

REPORT INFORMATION
  Report Type: 
  Country: None (occurrence: None)
  Receive Date: 20090717
  Receipt Date: 20090710
  Transmission Date: 20100115
  Serious: Yes (Other)
  Sender: FDA-Public Use
  Company Number: US-PURDUE-USA-2009-0039064

PATIENT
  Age: 28 Year
  Sex: Male

DRUGS (2)
  1. OXYCONTIN [Suspect]
     Indication: PAIN
  2. OXYCODONE HYDROCHLORIDE [Suspect]
     Indication: PAIN

REACTIONS (2)
  - LIVER INJURY [None]
  - PANCREATIC INJURY [None]
